FAERS Safety Report 10586187 (Version 1)
Quarter: 2014Q4

REPORT INFORMATION
  Report Type: Spontaneous
  Country: FR (occurrence: FR)
  Receive Date: 20141116
  Receipt Date: 20141116
  Transmission Date: 20150529
  Serious: Yes (Hospitalization)
  Sender: FDA-Public Use
  Company Number: FR-SA-2014SA154076

PATIENT
  Age: 74 Year
  Sex: Female

DRUGS (11)
  1. DIFFU K [Suspect]
     Active Substance: POTASSIUM CHLORIDE
     Route: 048
  2. DOLIPRANE [Concomitant]
     Active Substance: ACETAMINOPHEN
     Dosage: STRENGTH: 500 MG
  3. LASILIX SPECIAL [Suspect]
     Active Substance: FUROSEMIDE
     Route: 048
  4. BURINEX [Concomitant]
     Active Substance: BUMETANIDE
  5. DUPHALAC [Concomitant]
     Active Substance: LACTULOSE
  6. KEPPRA [Concomitant]
     Active Substance: LEVETIRACETAM
     Dosage: STRENGTH: 500 MG
  7. CORDARONE [Concomitant]
     Active Substance: AMIODARONE HYDROCHLORIDE
     Dosage: STRENGTH: 200 MG
     Route: 048
  8. LASILIX SPECIAL [Suspect]
     Active Substance: FUROSEMIDE
     Route: 048
     Dates: start: 201407
  9. PERINDOPRIL [Suspect]
     Active Substance: PERINDOPRIL
     Route: 048
     Dates: end: 20140728
  10. DIFFU K [Suspect]
     Active Substance: POTASSIUM CHLORIDE
     Route: 048
     Dates: start: 201407
  11. INEXIUM [Concomitant]
     Active Substance: ESOMEPRAZOLE
     Dosage: STRENGTH: 40 MG

REACTIONS (3)
  - Hyperkalaemia [Recovered/Resolved]
  - Acute kidney injury [Recovering/Resolving]
  - Bradycardia [Recovered/Resolved]

NARRATIVE: CASE EVENT DATE: 20140728
